FAERS Safety Report 6998135-2 (Version None)
Quarter: 2010Q3

REPORT INFORMATION
  Report Type: 
  Country: None (occurrence: None)
  Receive Date: 20100920
  Receipt Date: 20100517
  Transmission Date: 20110219
  Serious: Yes (Other)
  Sender: FDA-Public Use
  Company Number: US-ASTRAZENECA-2009UW20560

PATIENT
  Sex: Female

DRUGS (5)
  1. SEROQUEL [Suspect]
     Route: 048
     Dates: start: 20050601
  2. LORAZEPAM [Concomitant]
     Dates: start: 20050601
  3. PHENOBARBITAL [Concomitant]
     Dates: start: 20050601
  4. TEGRETOL [Concomitant]
     Dates: start: 20050601
  5. SYNTHROID [Concomitant]
     Dates: start: 20050601

REACTIONS (3)
  - DIABETES MELLITUS [None]
  - KETOACIDOSIS [None]
  - PANCREATITIS [None]
